FAERS Safety Report 21787456 (Version 1)
Quarter: 2022Q4

REPORT INFORMATION
  Report Type: Report from Study
  Country: PA (occurrence: PA)
  Receive Date: 20221228
  Receipt Date: 20221228
  Transmission Date: 20230113
  Serious: Yes (Other)
  Sender: FDA-Public Use
  Company Number: PA-002147023-NVSC2022PA036358

PATIENT
  Sex: Female

DRUGS (2)
  1. KISQALI [Suspect]
     Active Substance: RIBOCICLIB
     Indication: Breast cancer metastatic
     Dosage: 400 MG, QD
     Route: 048
     Dates: start: 202106
  2. KISQALI [Suspect]
     Active Substance: RIBOCICLIB
     Dosage: 400 MG, QD
     Route: 048
     Dates: start: 202107, end: 202212

REACTIONS (12)
  - Pulmonary oedema [Not Recovered/Not Resolved]
  - Hypersensitivity [Unknown]
  - Skin discolouration [Unknown]
  - Pigmentation disorder [Unknown]
  - Feeling abnormal [Unknown]
  - Pain in extremity [Unknown]
  - Peripheral swelling [Unknown]
  - Dry skin [Unknown]
  - Back pain [Unknown]
  - Fatigue [Unknown]
  - Pruritus [Unknown]
  - Cough [Not Recovered/Not Resolved]
